FAERS Safety Report 5975502-7 (Version None)
Quarter: 2008Q4

REPORT INFORMATION
  Report Type: 
  Country: None (occurrence: None)
  Receive Date: 20081202
  Receipt Date: 20081124
  Transmission Date: 20090506
  Serious: Yes (Hospitalization)
  Sender: FDA-Public Use
  Company Number: US-AMGEN-KDL318925

PATIENT
  Sex: Male

DRUGS (2)
  1. ENBREL [Suspect]
     Indication: PSORIASIS
     Route: 058
     Dates: start: 20051101
  2. UNSPECIFIED STEROIDS [Concomitant]

REACTIONS (2)
  - HIP ARTHROPLASTY [None]
  - NONSPECIFIC REACTION [None]
